FAERS Safety Report 9941490 (Version 1)
Quarter: 2014Q1

REPORT INFORMATION
  Report Type: Report from Study
  Country: US (occurrence: US)
  Receive Date: 20140303
  Receipt Date: 20140303
  Transmission Date: 20141002
  Serious: No
  Sender: FDA-Public Use
  Company Number: US-ABBVIE-13P-163-1039490-00

PATIENT
  Age: 28 Year
  Sex: Female
  Weight: 54.48 kg

DRUGS (6)
  1. HUMIRA [Suspect]
     Indication: PSORIASIS
     Dates: start: 20080721, end: 20081103
  2. HUMIRA [Suspect]
     Indication: PSORIATIC ARTHROPATHY
     Dates: start: 20081104, end: 20090501
  3. PRENATAL VITAMINS [Concomitant]
     Indication: PRODUCT USED FOR UNKNOWN INDICATION
     Dosage: 1 PILL
     Route: 048
     Dates: start: 20080721, end: 20090501
  4. DHA [Concomitant]
     Indication: PRODUCT USED FOR UNKNOWN INDICATION
     Dosage: 1 PILL
     Route: 048
     Dates: start: 20080721, end: 20090115
  5. DHA [Concomitant]
     Dosage: 1 PILL - 2.5 PER WEEK
     Route: 048
     Dates: start: 20090115, end: 20090501
  6. TUMS [Concomitant]
     Indication: MINERAL SUPPLEMENTATION
     Dosage: 2 PILLS DAILY
     Route: 048
     Dates: start: 20080915, end: 20090501

REACTIONS (4)
  - Headache [Unknown]
  - Urinary tract infection [Recovered/Resolved]
  - Hypersensitivity [Unknown]
  - Back pain [Unknown]
